FAERS Safety Report 5720401-9 (Version None)
Quarter: 2008Q2

REPORT INFORMATION
  Report Type: 
  Country: None (occurrence: None)
  Receive Date: 20080428
  Receipt Date: 20080425
  Transmission Date: 20081010
  Serious: Yes (Death, Other)
  Sender: FDA-Public Use
  Company Number: MZ-BOEHRINGER INGELHEIM GMBH, GERMANY-2006-DE-03857GD

PATIENT

DRUGS (6)
  1. NEVIRAPINE [Suspect]
     Indication: PROPHYLAXIS
     Route: 015
  2. NEVIRAPINE [Suspect]
     Indication: HUMAN IMMUNODEFICIENCY VIRUS TRANSMISSION
  3. LAMIVUDINE [Suspect]
     Indication: PROPHYLAXIS
     Route: 015
  4. LAMIVUDINE [Suspect]
     Indication: HUMAN IMMUNODEFICIENCY VIRUS TRANSMISSION
  5. ANTIRETROVIRAL DRUG [Suspect]
     Indication: PROPHYLAXIS
     Route: 015
  6. ANTIRETROVIRAL DRUG [Suspect]
     Indication: HUMAN IMMUNODEFICIENCY VIRUS TRANSMISSION

REACTIONS (2)
  - DEATH [None]
  - HIV INFECTION [None]
